FAERS Safety Report 25643186 (Version 1)
Quarter: 2025Q3

REPORT INFORMATION
  Report Type: Report from Study
  Country: US (occurrence: US)
  Receive Date: 20250805
  Receipt Date: 20250805
  Transmission Date: 20251020
  Serious: Yes (Other)
  Sender: ABBVIE
  Company Number: US-ABBVIE-6399085

PATIENT
  Sex: Female

DRUGS (2)
  1. SKYRIZI [Suspect]
     Active Substance: RISANKIZUMAB-RZAA
     Indication: Psoriatic arthropathy
     Route: 058
     Dates: start: 2023
  2. SKYRIZI [Suspect]
     Active Substance: RISANKIZUMAB-RZAA
     Indication: Rheumatoid arthritis

REACTIONS (6)
  - Breast cancer [Not Recovered/Not Resolved]
  - Accident [Unknown]
  - Musculoskeletal disorder [Recovered/Resolved]
  - Fall [Unknown]
  - Swelling [Unknown]
  - Cranial operation [Unknown]

NARRATIVE: CASE EVENT DATE: 20230101
